FAERS Safety Report 5449889-8 (Version None)
Quarter: 2007Q3

REPORT INFORMATION
  Report Type: 
  Country: None (occurrence: None)
  Receive Date: 20070907
  Receipt Date: 20070829
  Transmission Date: 20080115
  Serious: Yes (Other)
  Sender: FDA-Public Use
  Company Number: CHPA2007US08544

PATIENT
  Age: 65 Year
  Sex: Male

DRUGS (2)
  1. BENEFIBER FIBER SUPPLEMENT SUGAR FREE (NCH)(GUAR GUM) POWDER [Suspect]
     Indication: NUTRITIONAL SUPPORT
     Dosage: ORAL
     Route: 048
     Dates: start: 20040101
  2. DARVOCET-N (DEXTROPROPOXYPHENE NAPSILE, PARACETAMOL) [Concomitant]

REACTIONS (4)
  - COSTOCHONDRITIS [None]
  - DIVERTICULITIS [None]
  - FIBROMYALGIA [None]
  - GASTROINTESTINAL DISORDER [None]
